FAERS Safety Report 21689784 (Version 1)
Quarter: 2022Q4

REPORT INFORMATION
  Report Type: Report from Study
  Country: US (occurrence: US)
  Receive Date: 20221206
  Receipt Date: 20221206
  Transmission Date: 20230113
  Serious: No
  Sender: FDA-Public Use
  Company Number: US-002147023-NVSC2022US281231

PATIENT
  Sex: Female

DRUGS (1)
  1. PIQRAY [Suspect]
     Active Substance: ALPELISIB
     Indication: Breast cancer
     Dosage: 300 MG, QD
     Route: 048
     Dates: start: 202211

REACTIONS (7)
  - Eye paraesthesia [Unknown]
  - Oral pain [Unknown]
  - Eating disorder [Unknown]
  - Foreign body sensation in eyes [Unknown]
  - Dry eye [Unknown]
  - Nausea [Unknown]
  - Rash [Unknown]
